FAERS Safety Report 9298978 (Version 1)
Quarter: 2013Q2

REPORT INFORMATION
  Report Type: Spontaneous
  Country: US (occurrence: US)
  Receive Date: 20130520
  Receipt Date: 20130520
  Transmission Date: 20140414
  Serious: Yes (Other)
  Sender: FDA-Public Use
  Company Number: US-SANOFI-AVENTIS-2013SA013637

PATIENT
  Sex: Male

DRUGS (3)
  1. APIDRA [Suspect]
     Route: 058
  2. APIDRA [Suspect]
     Dosage: DOSE:62 UNIT(S)
     Route: 058
     Dates: start: 201302, end: 201302
  3. LANTUS [Suspect]
     Dosage: DOSE:62 UNIT(S)
     Route: 058

REACTIONS (2)
  - Hypoglycaemic unconsciousness [Recovered/Resolved]
  - Medication error [Recovered/Resolved]
